FAERS Safety Report 6247817-9 (Version None)
Quarter: 2009Q2

REPORT INFORMATION
  Report Type: 
  Country: None (occurrence: None)
  Receive Date: 20090626
  Receipt Date: 20090619
  Transmission Date: 20091009
  Serious: Yes (Death, Other)
  Sender: FDA-Public Use
  Company Number: FR-ELI_LILLY_AND_COMPANY-FR200906004633

PATIENT
  Sex: Male

DRUGS (2)
  1. GEMZAR [Suspect]
     Indication: LUNG ADENOCARCINOMA
     Dosage: UNK, UNKNOWN
     Route: 042
     Dates: start: 20090323, end: 20090513
  2. CISPLATIN [Concomitant]
     Indication: LUNG ADENOCARCINOMA
     Dosage: UNK, UNKNOWN
     Route: 042
     Dates: start: 20090320, end: 20090513

REACTIONS (10)
  - ACUTE RESPIRATORY FAILURE [None]
  - AGITATION [None]
  - CARDIAC MURMUR [None]
  - DISORIENTATION [None]
  - DYSKINESIA [None]
  - LUNG DISORDER [None]
  - OEDEMA PERIPHERAL [None]
  - PUPILS UNEQUAL [None]
  - RESPIRATORY DISTRESS [None]
  - SKIN DISORDER [None]
